FAERS Safety Report 8112782-6 (Version None)
Quarter: 2012Q1

REPORT INFORMATION
  Report Type: 
  Country: None (occurrence: None)
  Receive Date: 20120203
  Receipt Date: 20120124
  Transmission Date: 20120608
  Serious: Yes (Hospitalization)
  Sender: FDA-Public Use
  Company Number: FR-BRISTOL-MYERS SQUIBB COMPANY-16371395

PATIENT
  Age: 89 Year
  Sex: Male

DRUGS (13)
  1. PERMIXON [Concomitant]
     Dosage: CAPS
     Route: 048
  2. TAMSULOSIN HCL [Concomitant]
     Dosage: EXTENDED RELEASE MICROGRANULES IN CAPSULE
     Route: 048
  3. ZOLPIDEM [Concomitant]
     Dosage: 1DF: 1 TAB OF 10MG
     Route: 048
  4. PRIMIDONE [Concomitant]
     Route: 048
  5. LASIX [Concomitant]
     Dosage: 1DF: 1 TAB OF 40MG
     Route: 048
  6. MEMANTINE HYDROCHLORIDE [Concomitant]
     Dosage: 1DF: 1 TAB OF 10 MG, FILM-COATED TABLET
     Route: 048
  7. EXELON [Concomitant]
     Dosage: CAPS
     Route: 048
  8. COUMADIN [Suspect]
     Route: 048
     Dates: start: 20110817, end: 20110831
  9. ARIXTRA [Suspect]
     Dosage: STRENGTH:7.5 MG/0.6 ML.INJECTION IN PRE-FILLED SYRINGE
     Route: 058
     Dates: start: 20110817, end: 20110909
  10. ASPIRIN [Suspect]
     Dosage: POWDER FOR SOLUTION FOR ORAL SOLUTION IN SACHET-DOSE
     Route: 048
     Dates: start: 20110827, end: 20110831
  11. ZOLOFT [Concomitant]
     Dosage: CAPS
     Route: 048
  12. MYSOLINE [Concomitant]
     Route: 048
  13. POTASSIUM CHLORIDE [Concomitant]
     Route: 048

REACTIONS (2)
  - ATRIAL FIBRILLATION [None]
  - SUBDURAL HAEMATOMA [None]
